FAERS Safety Report 6581646-1 (Version None)
Quarter: 2010Q1

REPORT INFORMATION
  Report Type: 
  Country: None (occurrence: None)
  Receive Date: 20100215
  Receipt Date: 20100211
  Transmission Date: 20100710
  Serious: Yes (Other)
  Sender: FDA-Public Use
  Company Number: GB-TEVA-224074ISR

PATIENT
  Sex: Female

DRUGS (2)
  1. MORPHINE [Suspect]
     Indication: ARTHRALGIA
  2. MORPHINE [Suspect]
     Indication: HYPERMOBILITY SYNDROME

REACTIONS (2)
  - HYPERPROLACTINAEMIA [None]
  - LACTATION DISORDER [None]
